FAERS Safety Report 7466173-1 (Version None)
Quarter: 2011Q2

REPORT INFORMATION
  Report Type: 
  Country: None (occurrence: None)
  Receive Date: 20110509
  Receipt Date: 20110506
  Transmission Date: 20111010
  Serious: Yes (Life-Threatening, Other)
  Sender: FDA-Public Use
  Company Number: PHHY2011PL38123

PATIENT
  Sex: Female
  Weight: 68 kg

DRUGS (4)
  1. FLUOROURACIL [Suspect]
     Indication: COLON CANCER
     Dosage: 890 MG, UNK
     Route: 042
     Dates: start: 20101014, end: 20101216
  2. CALCII FOLINAS [Concomitant]
     Indication: COLON CANCER
     Dosage: 890 MG, UNK
     Route: 042
     Dates: start: 20101014, end: 20101216
  3. XELODA [Suspect]
     Dosage: 3000 MG, UNK
     Route: 048
     Dates: start: 20110104, end: 20110120
  4. OXALIPLATIN [Suspect]
     Indication: COLON CANCER
     Dosage: 300 MG, UNK
     Route: 042
     Dates: start: 20101014, end: 20110201

REACTIONS (8)
  - PHLEBITIS [None]
  - PALMAR-PLANTAR ERYTHRODYSAESTHESIA SYNDROME [None]
  - MUSCLE TIGHTNESS [None]
  - DERMATITIS ALLERGIC [None]
  - ALLERGIC OEDEMA [None]
  - DIARRHOEA [None]
  - DYSPNOEA [None]
  - OEDEMA PERIPHERAL [None]
